FAERS Safety Report 14309711 (Version 2)
Quarter: 2018Q1

REPORT INFORMATION
  Report Type: Spontaneous
  Country: US (occurrence: US)
  Receive Date: 20171220
  Receipt Date: 20180326
  Transmission Date: 20180509
  Serious: No
  Sender: FDA-Public Use
  Company Number: US-INCYTE CORPORATION-2017IN010838

PATIENT

DRUGS (3)
  1. JAKAFI [Suspect]
     Active Substance: RUXOLITINIB
     Indication: WHITE BLOOD CELL COUNT INCREASED
     Dosage: 10 MG, BID
     Route: 048
     Dates: start: 20130816
  2. JAKAFI [Suspect]
     Active Substance: RUXOLITINIB
     Dosage: 10 MG, BID
     Route: 048
     Dates: start: 20130916
  3. JAKAFI [Suspect]
     Active Substance: RUXOLITINIB
     Dosage: ONCE DAILY
     Route: 048

REACTIONS (2)
  - Disease progression [Not Recovered/Not Resolved]
  - Off label use [Not Recovered/Not Resolved]

NARRATIVE: CASE EVENT DATE: 20130816
